FAERS Safety Report 5431434-4 (Version None)
Quarter: 2007Q3

REPORT INFORMATION
  Report Type: 
  Country: None (occurrence: None)
  Receive Date: 20070830
  Receipt Date: 20070608
  Transmission Date: 20080115
  Serious: No
  Sender: FDA-Public Use
  Company Number: A0655810A

PATIENT
  Sex: Female

DRUGS (2)
  1. WELLBUTRIN XL [Suspect]
     Indication: MIGRAINE PROPHYLAXIS
     Dosage: 300MG PER DAY
  2. LAMICTAL [Suspect]
     Indication: MIGRAINE PROPHYLAXIS
     Dosage: 100MG TWICE PER DAY

REACTIONS (4)
  - DRUG INEFFECTIVE [None]
  - MIGRAINE [None]
  - OFF LABEL USE [None]
  - THERAPEUTIC RESPONSE UNEXPECTED [None]
